FAERS Safety Report 11749870 (Version 4)
Quarter: 2016Q1

REPORT INFORMATION
  Report Type: Report from Study
  Country: JP (occurrence: JP)
  Receive Date: 20151118
  Receipt Date: 20160201
  Transmission Date: 20160525
  Serious: Yes (Hospitalization, Other)
  Sender: FDA-Public Use
  Company Number: JP-OTSUKA-2015_013829

PATIENT
  Age: 69 Year
  Sex: Female
  Weight: 55 kg

DRUGS (27)
  1. BAYASPIRIN [Concomitant]
     Active Substance: ASPIRIN
     Indication: MYOCARDIAL ISCHAEMIA
     Dosage: 100 MG/DAY
     Route: 048
  2. LANIRAPID [Concomitant]
     Active Substance: METILDIGOXIN
     Indication: CARDIAC FAILURE
     Dosage: 0.05 MG/DAY
     Route: 048
     Dates: start: 20131010
  3. TOLVAPTAN [Suspect]
     Active Substance: TOLVAPTAN
     Dosage: 3.75 MG, QD, IN THE MORNING
     Route: 048
     Dates: start: 20140830, end: 20150918
  4. ENALAPRIL [Suspect]
     Active Substance: ENALAPRIL
     Dosage: 20 MG, DAILY DOSE
     Route: 048
     Dates: start: 20140908, end: 20150514
  5. ENALAPRIL [Suspect]
     Active Substance: ENALAPRIL
     Dosage: 10 MG, DAILY DOSE
     Route: 048
     Dates: start: 20150515
  6. LASIX M [Concomitant]
     Active Substance: FUROSEMIDE
     Indication: CARDIAC FAILURE
     Dosage: 60 MG/DAY
     Route: 048
  7. CLOTIAZEPAM [Concomitant]
     Active Substance: CLOTIAZEPAM
     Indication: PRODUCT USED FOR UNKNOWN INDICATION
     Dosage: 10 MG/DAY
     Route: 048
  8. TOLVAPTAN [Suspect]
     Active Substance: TOLVAPTAN
     Dosage: 7.5 MG, QD, IN THE MORNING
     Route: 048
     Dates: start: 20131210, end: 20140820
  9. ENALAPRIL [Suspect]
     Active Substance: ENALAPRIL
     Indication: CARDIAC FAILURE
     Dosage: 2.5 MG, DAILY DOSE
     Route: 048
     Dates: end: 20131114
  10. ENALAPRIL [Suspect]
     Active Substance: ENALAPRIL
     Dosage: 5 MG, DAILY DOSE
     Route: 048
     Dates: start: 20131115, end: 20140106
  11. ENALAPRIL [Suspect]
     Active Substance: ENALAPRIL
     Dosage: 10 MG, DAILY DOSE
     Route: 048
     Dates: start: 20140107, end: 20140303
  12. ENALAPRIL [Suspect]
     Active Substance: ENALAPRIL
     Dosage: 15 MG, DAILY DOSE
     Route: 048
     Dates: start: 20140826, end: 20140907
  13. ARGAMATE [Concomitant]
     Active Substance: CALCIUM POLYSTYRENE SULFONATE
     Indication: HYPERKALAEMIA
  14. FAMOTIDINE. [Concomitant]
     Active Substance: FAMOTIDINE
     Indication: PROPHYLAXIS
  15. ALDACTONE A [Suspect]
     Active Substance: SPIRONOLACTONE
     Indication: CARDIAC FAILURE
     Dosage: 25 MG, DAILY DOSE
     Route: 048
  16. ENALAPRIL [Suspect]
     Active Substance: ENALAPRIL
     Dosage: 15 MG, DAILY DOSE
     Route: 048
     Dates: start: 20140304, end: 20140811
  17. NOVORAPID [Concomitant]
     Active Substance: INSULIN ASPART
     Indication: PRODUCT USED FOR UNKNOWN INDICATION
     Dosage: 16 IU/DAY
     Route: 058
  18. FAMOTIDINE. [Concomitant]
     Active Substance: FAMOTIDINE
     Indication: PRODUCT USED FOR UNKNOWN INDICATION
     Dosage: 20 MG, DAILY DOSE
     Route: 048
     Dates: end: 20131022
  19. ARGAMATE [Concomitant]
     Active Substance: CALCIUM POLYSTYRENE SULFONATE
     Indication: PRODUCT USED FOR UNKNOWN INDICATION
     Dosage: 25 G, DAILY DOSE
     Route: 048
     Dates: start: 20131029, end: 20131031
  20. TOLVAPTAN [Suspect]
     Active Substance: TOLVAPTAN
     Indication: FLUID RETENTION
     Dosage: 3.75 MG, QD, IN THE MORNING
     Route: 048
     Dates: start: 20131023, end: 20131209
  21. WARFARIN [Concomitant]
     Active Substance: WARFARIN
     Indication: CARDIAC FAILURE
     Dosage: 2 MG/DAY
     Route: 048
  22. LANIRAPID [Concomitant]
     Active Substance: METILDIGOXIN
     Indication: PRODUCT USED FOR UNKNOWN INDICATION
  23. ENALAPRIL [Suspect]
     Active Substance: ENALAPRIL
     Dosage: 10 MG, DAILY DOSE
     Route: 048
     Dates: start: 20140812, end: 20140825
  24. ARTIST [Concomitant]
     Active Substance: CARVEDILOL
     Indication: CARDIAC FAILURE
     Dosage: 5 MG/DAY
     Route: 048
  25. ZYLORIC [Concomitant]
     Active Substance: ALLOPURINOL
     Indication: PRODUCT USED FOR UNKNOWN INDICATION
     Dosage: 100 MG/DAY
     Route: 048
  26. PARIET [Concomitant]
     Active Substance: RABEPRAZOLE SODIUM
     Indication: PROPHYLAXIS
     Dosage: 10 MG/DAY
     Route: 048
     Dates: start: 20131022
  27. NATRIX [Concomitant]
     Active Substance: INDAPAMIDE
     Indication: CARDIAC FAILURE
     Dosage: 1 MG, DAILY DOSE, IN THE MORNING
     Route: 048
     Dates: start: 20140827

REACTIONS (6)
  - Thirst [Recovering/Resolving]
  - Malaise [Unknown]
  - Blood urea increased [Unknown]
  - Hyperkalaemia [Recovered/Resolved]
  - Hepatic function abnormal [Recovering/Resolving]
  - Hepatic function abnormal [Recovering/Resolving]

NARRATIVE: CASE EVENT DATE: 20131029
